FAERS Safety Report 7816235-1 (Version None)
Quarter: 2011Q4

REPORT INFORMATION
  Report Type: 
  Country: None (occurrence: None)
  Receive Date: 20111016
  Receipt Date: 20111007
  Transmission Date: 20120403
  Serious: Yes (Death)
  Sender: FDA-Public Use
  Company Number: IT-CELGENEUS-083-20785-11101003

PATIENT

DRUGS (1)
  1. THALIDOMIDE [Suspect]
     Route: 048
     Dates: end: 20110322

REACTIONS (1)
  - DISEASE PROGRESSION [None]
